FAERS Safety Report 10031586 (Version 1)
Quarter: 2014Q1

REPORT INFORMATION
  Report Type: Spontaneous
  Country: FR (occurrence: LU)
  Receive Date: 20140324
  Receipt Date: 20140324
  Transmission Date: 20141002
  Serious: Yes (Hospitalization)
  Sender: FDA-Public Use
  Company Number: FR-009507513-1403FRA007120

PATIENT
  Age: 53 Year
  Sex: Female

DRUGS (6)
  1. ESMERON [Suspect]
     Indication: INDUCTION OF ANAESTHESIA
     Dosage: 1 DF, ONCE
     Route: 051
     Dates: start: 20130607, end: 20130607
  2. CLINDAMYCIN [Suspect]
     Indication: PRODUCT USED FOR UNKNOWN INDICATION
     Dosage: 1 DF, ONCE
     Route: 042
     Dates: start: 20130607, end: 20130607
  3. SUFENTA [Suspect]
     Indication: INDUCTION OF ANAESTHESIA
     Dosage: 1 DF, ONCE
     Route: 051
     Dates: start: 20130607, end: 20130607
  4. FORTECORTIN [Suspect]
     Indication: INDUCTION OF ANAESTHESIA
     Dosage: 1 DF, ONCE
     Route: 051
     Dates: start: 20130607, end: 20130607
  5. XYLOCAINE (LIDOCAINE HYDROCHLORIDE) [Suspect]
     Indication: INDUCTION OF ANAESTHESIA
     Dosage: 1 DF, ONCE
     Route: 051
     Dates: start: 20130607, end: 20130607
  6. PROPOFOL [Suspect]
     Indication: PRODUCT USED FOR UNKNOWN INDICATION
     Dosage: 1 DF, ONCE
     Route: 051
     Dates: start: 20130607, end: 20130607

REACTIONS (3)
  - Oedema peripheral [Recovered/Resolved]
  - Blood pressure decreased [Recovered/Resolved]
  - Eyelid oedema [Recovered/Resolved]
